FAERS Safety Report 4877378-8 (Version None)
Quarter: 2006Q1

REPORT INFORMATION
  Report Type: 
  Country: None (occurrence: None)
  Receive Date: 20060111
  Receipt Date: 20051213
  Transmission Date: 20060701
  Serious: Yes (Hospitalization)
  Sender: FDA-Public Use
  Company Number: US-BOEHRINGER INGELHEIM PHARMACEUTICALS, INC.-2005-BP-21375BP

PATIENT
  Sex: Female

DRUGS (11)
  1. MOBIC [Suspect]
     Indication: SCIATICA
     Route: 048
     Dates: start: 20051123
  2. MOBIC [Suspect]
     Route: 048
     Dates: start: 20051125, end: 20051127
  3. COUMADIN [Suspect]
     Indication: ATRIAL FIBRILLATION
  4. COUMADIN [Suspect]
     Indication: CARDIAC ASSISTANCE DEVICE USER
  5. DILTIAZEM HCL [Concomitant]
     Indication: HYPERTENSION
  6. SYNTHROID [Concomitant]
     Indication: THYROID DISORDER
  7. DIGITEK [Concomitant]
     Indication: ATRIAL FIBRILLATION
  8. FUROSEMIDE [Concomitant]
  9. ACETAMINOPHEN [Concomitant]
     Indication: ARTHRITIS
  10. SUCRALFATE [Concomitant]
  11. PROTONIX [Concomitant]

REACTIONS (4)
  - HAEMATOCHEZIA [None]
  - OEDEMA [None]
  - SWELLING [None]
  - ULCER HAEMORRHAGE [None]
